FAERS Safety Report 20326345 (Version 1)
Quarter: 2022Q1

REPORT INFORMATION
  Report Type: Spontaneous
  Country: BE (occurrence: BE)
  Receive Date: 20220112
  Receipt Date: 20220112
  Transmission Date: 20220423
  Serious: Yes (Hospitalization, Other)
  Sender: FDA-Public Use
  Company Number: BE-LUPIN PHARMACEUTICALS INC.-2021-26810

PATIENT
  Age: 56 Year
  Sex: Male

DRUGS (17)
  1. PREGABALIN [Suspect]
     Active Substance: PREGABALIN
     Indication: Metastases to meninges
     Dosage: 150 MILLIGRAM
     Route: 048
  2. PREGABALIN [Suspect]
     Active Substance: PREGABALIN
     Indication: Chest pain
  3. METHYLPREDNISOLONE [Suspect]
     Active Substance: METHYLPREDNISOLONE
     Indication: Metastases to meninges
     Dosage: UNK
     Route: 065
  4. METHYLPREDNISOLONE [Suspect]
     Active Substance: METHYLPREDNISOLONE
     Indication: Chest pain
  5. MORPHINE [Suspect]
     Active Substance: MORPHINE
     Indication: Metastases to meninges
     Dosage: 520 MILLIGRAM, QD
     Route: 048
  6. MORPHINE [Suspect]
     Active Substance: MORPHINE
     Indication: Chest pain
     Dosage: UNK, 0.2 MG/ML
     Route: 065
  7. MORPHINE [Suspect]
     Active Substance: MORPHINE
     Indication: Analgesic therapy
  8. AMITRIPTYLINE [Suspect]
     Active Substance: AMITRIPTYLINE
     Indication: Tumour pain
     Dosage: UNK
     Route: 065
  9. AMITRIPTYLINE [Suspect]
     Active Substance: AMITRIPTYLINE
     Indication: Chest pain
  10. KETAMINE [Suspect]
     Active Substance: KETAMINE
     Indication: Tumour pain
     Dosage: 37.5 MILLIGRAM
     Route: 048
  11. KETAMINE [Suspect]
     Active Substance: KETAMINE
     Indication: Chest pain
  12. METAMIZOLE [Suspect]
     Active Substance: METAMIZOLE
     Indication: Tumour pain
     Dosage: 3 GRAM, QD
     Route: 048
  13. METAMIZOLE [Suspect]
     Active Substance: METAMIZOLE
     Indication: Chest pain
  14. REMIFENTANIL [Concomitant]
     Active Substance: REMIFENTANIL
     Indication: Anaesthesia
     Dosage: UNK
     Route: 065
  15. PROPOFOL [Concomitant]
     Active Substance: PROPOFOL
     Indication: Anaesthesia
     Dosage: UNK
     Route: 065
  16. BUPIVACAINE [Concomitant]
     Active Substance: BUPIVACAINE
     Indication: Analgesic therapy
     Dosage: 0.5 MG/ML
     Route: 065
  17. CLONIDINE [Concomitant]
     Active Substance: CLONIDINE
     Indication: Analgesic therapy
     Dosage: 3 UNK
     Route: 065

REACTIONS (6)
  - Sedation [Unknown]
  - Vomiting [Recovered/Resolved]
  - Loss of consciousness [Recovered/Resolved]
  - Respiratory depression [Unknown]
  - Overdose [Unknown]
  - Bradypnoea [Unknown]
